FAERS Safety Report 6931198-9 (Version None)
Quarter: 2010Q3

REPORT INFORMATION
  Report Type: 
  Country: None (occurrence: None)
  Receive Date: 20100813
  Receipt Date: 20100802
  Transmission Date: 20110219
  Serious: Yes (Hospitalization)
  Sender: FDA-Public Use
  Company Number: 2010SP002145

PATIENT
  Age: 67 Year
  Sex: Female
  Weight: 59.3 kg

DRUGS (33)
  1. XOPENEX [Suspect]
     Indication: CHRONIC OBSTRUCTIVE PULMONARY DISEASE
     Dosage: PRN;INHALATION ; Q4H;INHALATION
     Route: 055
     Dates: start: 20090118, end: 20090927
  2. XOPENEX [Suspect]
     Indication: CHRONIC OBSTRUCTIVE PULMONARY DISEASE
     Dosage: PRN;INHALATION ; Q4H;INHALATION
     Route: 055
     Dates: start: 20100702
  3. LOVASTATIN [Concomitant]
  4. FUROSEMIDE [Concomitant]
  5. FISH OIL [Concomitant]
  6. COD LIVER [Concomitant]
  7. PREDNISONE [Concomitant]
  8. RIZATRIPTAN BENZOATE [Concomitant]
  9. LIDODERM [Concomitant]
  10. SPIRIVA [Concomitant]
  11. VITAMIN A [Concomitant]
  12. ADVAIR DISKUS 100/50 [Concomitant]
  13. ACIPHEX [Concomitant]
  14. LYRICA [Concomitant]
  15. HYDROCHLOROTHIAZIDE [Concomitant]
  16. FOSAMAX [Concomitant]
  17. FIBRE, DIETARY [Concomitant]
  18. MULTIVITAMINS AND IRON [Concomitant]
  19. MINERAL TAB [Concomitant]
  20. AMITRIPTYLINE HCL [Concomitant]
  21. TRAZODONE HCL [Concomitant]
  22. ACETAMINOPHEN AND HYDROCODONE BITARTRATE [Concomitant]
  23. DICLOFENAC SODIUM [Concomitant]
  24. POLYETHYLENE GLYCOL [Concomitant]
  25. PULMICORT [Concomitant]
  26. TUMS /00108001/ [Concomitant]
  27. POTASSIUM GLUCONATE TAB [Concomitant]
  28. ESTRACE [Concomitant]
  29. INEXIUM /01479302/ [Concomitant]
  30. ACETAMINOPHEN AND OXYCODONE HCL [Concomitant]
  31. POTASSIUM CHLORIDE [Concomitant]
  32. AVELOX [Concomitant]
  33. PREV MEDS [Concomitant]

REACTIONS (15)
  - ATELECTASIS [None]
  - BACK PAIN [None]
  - BRONCHITIS [None]
  - CARDIOMEGALY [None]
  - CHRONIC OBSTRUCTIVE PULMONARY DISEASE [None]
  - CONDITION AGGRAVATED [None]
  - DECUBITUS ULCER [None]
  - DRUG INEFFECTIVE [None]
  - DYSPNOEA [None]
  - EMPHYSEMA [None]
  - HYPOKALAEMIA [None]
  - HYPONATRAEMIA [None]
  - LUNG INFILTRATION [None]
  - PNEUMONIA [None]
  - SINUS TACHYCARDIA [None]
